FAERS Safety Report 11337900 (Version 1)
Quarter: 2015Q3

REPORT INFORMATION
  Report Type: Spontaneous
  Country: US (occurrence: US)
  Receive Date: 20150803
  Receipt Date: 20150803
  Transmission Date: 20151125
  Serious: Yes (Other)
  Sender: FDA-Public Use
  Company Number: US-ELI_LILLY_AND_COMPANY-US201001004606

PATIENT
  Age: 46 Year
  Sex: Female
  Weight: 77.1 kg

DRUGS (3)
  1. ZYPREXA [Suspect]
     Active Substance: OLANZAPINE
     Indication: MAJOR DEPRESSION
     Dosage: 5 MG, EACH EVENING
     Route: 048
     Dates: start: 20090928, end: 20100115
  2. CLONAZEPAM. [Concomitant]
     Active Substance: CLONAZEPAM
     Indication: ANXIETY
     Dosage: 1 MG, 2/D
     Dates: start: 200905
  3. PAROXETINE [Concomitant]
     Active Substance: PAROXETINE\PAROXETINE HYDROCHLORIDE
     Indication: DEPRESSION
     Dosage: 40 MG, DAILY (1/D)
     Dates: start: 20090928

REACTIONS (6)
  - Alanine aminotransferase increased [Unknown]
  - Weight increased [Unknown]
  - Aspartate aminotransferase increased [Unknown]
  - Blood triglycerides increased [Recovering/Resolving]
  - Low density lipoprotein increased [Not Recovered/Not Resolved]
  - Blood cholesterol increased [Recovering/Resolving]

NARRATIVE: CASE EVENT DATE: 20100115
